FAERS Safety Report 23055306 (Version 5)
Quarter: 2024Q4

REPORT INFORMATION
  Report Type: Report from Study
  Country: NL (occurrence: NL)
  Receive Date: 20231011
  Receipt Date: 20241105
  Transmission Date: 20250115
  Serious: Yes (Hospitalization, Other)
  Sender: ABBVIE
  Company Number: NL-ABBVIE-5445151

PATIENT
  Sex: Male

DRUGS (11)
  1. CARBIDOPA\LEVODOPA [Suspect]
     Active Substance: CARBIDOPA\LEVODOPA
     Indication: Parkinson^s disease
     Dosage: MD: 6.5 ML, CD: 4.0 ML/H, ED: 2.0 ML, ND: 0.0 ML, CND: 3.3 ML/H, END: 2.0 ML?REMAINS AT 24 HOURS
     Route: 050
     Dates: start: 20220502
  2. CARBIDOPA\LEVODOPA [Suspect]
     Active Substance: CARBIDOPA\LEVODOPA
     Dosage: MD: 6.5 ML, CD: 4.0 ML/H, ED: 2.0 ML, ND: 0.0 ML, CND: 3.3 ML/H, END: 2.0 ML, DURATION AT 16 HOURS
     Route: 050
  3. CARBIDOPA\LEVODOPA [Suspect]
     Active Substance: CARBIDOPA\LEVODOPA
     Dosage: MD: 6.5 ML, CD: 4.0 ML/H, ED: 2.0 ML
     Route: 050
     Dates: start: 20240510, end: 20240611
  4. CARBIDOPA\LEVODOPA [Suspect]
     Active Substance: CARBIDOPA\LEVODOPA
     Dosage: CND:3.3ML/H, END:2.0ML
     Route: 050
     Dates: start: 20240715
  5. CARBIDOPA\LEVODOPA [Suspect]
     Active Substance: CARBIDOPA\LEVODOPA
     Dosage: MD: 6.5 ML, CD: 4.0 ML/H, ED: 2.0 ML, ND: 0.0 ML, CND: 3.3 ML/H, DURATION AT 24 HOURS
     Route: 050
  6. CARBIDOPA\LEVODOPA [Suspect]
     Active Substance: CARBIDOPA\LEVODOPA
     Dosage: MD: 6.5 ML, CD: 4.0 ML/H, ED: 2.0 ML
     Route: 050
     Dates: start: 20240611, end: 20240715
  7. SINEMET [Concomitant]
     Active Substance: CARBIDOPA\LEVODOPA
     Indication: Parkinson^s disease
     Dosage: ONE AT TEN PM
     Route: 048
     Dates: start: 201703
  8. STALEVO [Concomitant]
     Active Substance: CARBIDOPA\ENTACAPONE\LEVODOPA
     Indication: Parkinson^s disease
     Dosage: ONE AT 5 PM
     Route: 048
     Dates: start: 201903, end: 20220502
  9. STALEVO [Concomitant]
     Active Substance: CARBIDOPA\ENTACAPONE\LEVODOPA
     Indication: Parkinson^s disease
     Dosage: 7 TIMES A DAY
     Route: 048
     Dates: start: 201703, end: 20220502
  10. AMANTADINE [Concomitant]
     Active Substance: AMANTADINE
     Indication: Parkinson^s disease
     Dosage: FREQUENCY 2 UNITS
     Route: 048
     Dates: start: 202003
  11. MOVICOLON [Concomitant]
     Active Substance: POLYETHYLENE GLYCOL 3350\POTASSIUM CHLORIDE\SODIUM BICARBONATE\SODIUM CHLORIDE
     Indication: Bowel movement irregularity
     Dosage: IF NEEDED

REACTIONS (26)
  - Osteoarthritis [Recovering/Resolving]
  - Parkinson^s disease [Not Recovered/Not Resolved]
  - Abnormal behaviour [Not Recovered/Not Resolved]
  - Dysphagia [Recovering/Resolving]
  - Pain [Not Recovered/Not Resolved]
  - Infrequent bowel movements [Recovered/Resolved]
  - Gait disturbance [Not Recovered/Not Resolved]
  - Stoma site pain [Not Recovered/Not Resolved]
  - Memory impairment [Not Recovered/Not Resolved]
  - Musculoskeletal disorder [Not Recovered/Not Resolved]
  - Speech disorder [Not Recovered/Not Resolved]
  - Mood altered [Not Recovered/Not Resolved]
  - Stoma site discharge [Not Recovered/Not Resolved]
  - Mastication disorder [Not Recovered/Not Resolved]
  - Stress [Not Recovered/Not Resolved]
  - Unevaluable event [Unknown]
  - Frustration tolerance decreased [Not Recovered/Not Resolved]
  - Fluid intake reduced [Recovering/Resolving]
  - Stoma site irritation [Not Recovered/Not Resolved]
  - Dyschezia [Not Recovered/Not Resolved]
  - Posture abnormal [Recovering/Resolving]
  - Aphasia [Not Recovered/Not Resolved]
  - Weight increased [Not Recovered/Not Resolved]
  - Unevaluable event [Not Recovered/Not Resolved]
  - Wrist surgery [Not Recovered/Not Resolved]
  - Sleep disorder [Recovering/Resolving]

NARRATIVE: CASE EVENT DATE: 20231005
